FAERS Safety Report 11892223 (Version 1)
Quarter: 2016Q1

REPORT INFORMATION
  Report Type: Report from Study
  Country: EE (occurrence: EE)
  Receive Date: 20160106
  Receipt Date: 20160106
  Transmission Date: 20160526
  Serious: Yes (Hospitalization)
  Sender: FDA-Public Use
  Company Number: EE-JNJFOC-20151223568

PATIENT
  Age: 52 Year
  Sex: Female

DRUGS (1)
  1. IBRUTINIB [Suspect]
     Active Substance: IBRUTINIB
     Indication: MANTLE CELL LYMPHOMA
     Route: 048
     Dates: start: 20150406, end: 20151221

REACTIONS (2)
  - Peritoneal haemorrhage [Recovering/Resolving]
  - Lymphatic duct injury [Recovering/Resolving]

NARRATIVE: CASE EVENT DATE: 20151220
